FAERS Safety Report 24951537 (Version 1)
Quarter: 2025Q1

REPORT INFORMATION
  Report Type: Spontaneous
  Country: US (occurrence: US)
  Receive Date: 20250210
  Receipt Date: 20250210
  Transmission Date: 20250408
  Serious: No
  Sender: INTRA-CELLULAR THERAPIES
  Company Number: US-INTRA-CELLULAR THERAPIES, INC.-2024ICT01841

PATIENT
  Sex: Female

DRUGS (4)
  1. CAPLYTA [Suspect]
     Active Substance: LUMATEPERONE
     Indication: Schizoaffective disorder bipolar type
  2. CLOZARIL [Concomitant]
     Active Substance: CLOZAPINE
  3. VISTARIL [Concomitant]
     Active Substance: HYDROXYZINE PAMOATE
  4. XANAX [Concomitant]
     Active Substance: ALPRAZOLAM

REACTIONS (2)
  - Agitation [Unknown]
  - Off label use [Recovered/Resolved]
